FAERS Safety Report 23779946 (Version 2)
Quarter: 2024Q2

REPORT INFORMATION
  Report Type: Spontaneous
  Country: FR (occurrence: FR)
  Receive Date: 20240424
  Receipt Date: 20240426
  Transmission Date: 20240717
  Serious: Yes (Hospitalization)
  Sender: FDA-Public Use
  Company Number: FR-VER-202400005

PATIENT
  Age: 21 Year
  Sex: Female
  Weight: 67 kg

DRUGS (3)
  1. TRIPTORELIN PAMOATE [Suspect]
     Active Substance: TRIPTORELIN PAMOATE
     Indication: Ovulation induction
     Dosage: 2 DOSAGE FORM, POWDER AND SOLVENT FOR SOLUTION FOR INJECTION
     Route: 058
     Dates: start: 20230729, end: 20230729
  2. GONAL-F [Suspect]
     Active Substance: FOLLITROPIN
     Indication: Controlled ovarian stimulation
     Dosage: 162.5 INTERNATIONAL UNIT(S), IN 1 DAY
     Route: 058
     Dates: start: 20230717, end: 20230728
  3. GANIRELIX ACETATE [Concomitant]
     Active Substance: GANIRELIX ACETATE
     Indication: Controlled ovarian stimulation
     Dosage: 1 DOSAGE FORM, IN 1 DAY
     Route: 058
     Dates: start: 20230724, end: 20230728

REACTIONS (2)
  - Ovarian hyperstimulation syndrome [Recovered/Resolved]
  - Pelvic pain [Recovered/Resolved]

NARRATIVE: CASE EVENT DATE: 20230731
